FAERS Safety Report 15227231 (Version 2)
Quarter: 2018Q3

REPORT INFORMATION
  Report Type: Spontaneous
  Country: US (occurrence: US)
  Receive Date: 20180801
  Receipt Date: 20180913
  Transmission Date: 20181010
  Serious: Yes (Other)
  Sender: FDA-Public Use
  Company Number: US-AMGEN-USASP2018102696

PATIENT
  Age: 46 Year
  Sex: Male

DRUGS (1)
  1. NPLATE [Suspect]
     Active Substance: ROMIPLOSTIM
     Indication: IMMUNE THROMBOCYTOPENIC PURPURA
     Dosage: UNK
     Route: 065
     Dates: start: 2012, end: 201306

REACTIONS (4)
  - Abdominal lymphadenopathy [Unknown]
  - Retroperitoneal lymphadenopathy [Unknown]
  - Whipple^s disease [Recovering/Resolving]
  - Marrow hyperplasia [Unknown]
